FAERS Safety Report 7343021-1 (Version None)
Quarter: 2011Q1

REPORT INFORMATION
  Report Type: 
  Country: None (occurrence: None)
  Receive Date: 20110310
  Receipt Date: 20110307
  Transmission Date: 20110831
  Serious: Yes (Death, Hospitalization, Other)
  Sender: FDA-Public Use
  Company Number: PHHY2011CA03236

PATIENT
  Sex: Female

DRUGS (2)
  1. SANDOSTATIN LAR [Suspect]
     Dosage: 30 MG, QMO
     Route: 030
  2. SANDOSTATIN LAR [Suspect]
     Indication: CARCINOID SYNDROME
     Dosage: 30 MG, EVERY 4 WEEKS
     Route: 030
     Dates: start: 20101125

REACTIONS (4)
  - CARDIAC DISORDER [None]
  - DEATH [None]
  - BLOOD PRESSURE INCREASED [None]
  - TRICUSPID VALVE INCOMPETENCE [None]
